FAERS Safety Report 24989551 (Version 2)
Quarter: 2025Q3

REPORT INFORMATION
  Report Type: Spontaneous
  Country: EU (occurrence: EU)
  Receive Date: 20250220
  Receipt Date: 20250803
  Transmission Date: 20251021
  Serious: Yes (Hospitalization, Other)
  Sender: ALEXION PHARMACEUTICALS
  Company Number: None

PATIENT
  Age: 63 Year
  Sex: Male
  Weight: 76 kg

DRUGS (3)
  1. IMFINZI [Suspect]
     Active Substance: DURVALUMAB
     Indication: Neoplasm malignant
     Dosage: 10 MILLIGRAM/KILOGRAM, Q2W (10 MG/KG ONCE EVERY 2 WEEKS)
     Dates: start: 20241020, end: 20241220
  2. NEXAVAR [Suspect]
     Active Substance: SORAFENIB
     Indication: Neoplasm malignant
     Dosage: 4 DOSAGE FORM, QD (400 MG TWICE DAILY)
     Dates: start: 20250113, end: 20250121
  3. IOBITRIDOL [Concomitant]
     Active Substance: IOBITRIDOL
     Indication: Scan
     Dates: start: 20241230, end: 20241230

REACTIONS (4)
  - Toxic skin eruption [Recovered/Resolved]
  - Mouth ulceration [Recovered/Resolved]
  - Hyperleukocytosis [Recovered/Resolved]
  - Pyrexia [Recovered/Resolved]

NARRATIVE: CASE EVENT DATE: 20250121
